FAERS Safety Report 21994225 (Version 1)
Quarter: 2023Q1

REPORT INFORMATION
  Report Type: Spontaneous
  Country: DE (occurrence: DE)
  Receive Date: 20230215
  Receipt Date: 20230215
  Transmission Date: 20230417
  Serious: Yes (Other)
  Sender: FDA-Public Use
  Company Number: DE-EMBRYOTOX-202100378

PATIENT
  Age: 1 Day
  Sex: Male

DRUGS (2)
  1. ESCITALOPRAM [Suspect]
     Active Substance: ESCITALOPRAM OXALATE
     Indication: Anxiety disorder
     Dosage: 10 MILLIGRAM DAILY; 10 [MG/D ]/ AND DEPRESSION 0. - 41.2. GESTATIONAL WEEK
     Route: 065
     Dates: start: 20201027, end: 20210812
  2. PANTOPRAZOLE SODIUM [Concomitant]
     Active Substance: PANTOPRAZOLE SODIUM
     Indication: Gastrooesophageal reflux disease
     Dosage: 20 MILLIGRAM DAILY; 33. - 41.2. GESTATIONAL WEEK
     Route: 065

REACTIONS (4)
  - Respiratory disorder neonatal [Recovered/Resolved]
  - Atrial septal defect [Unknown]
  - Bradycardia neonatal [Recovered/Resolved]
  - Foetal exposure during pregnancy [Unknown]

NARRATIVE: CASE EVENT DATE: 20201027
